FAERS Safety Report 24406154 (Version 5)
Quarter: 2025Q2

REPORT INFORMATION
  Report Type: Spontaneous
  Country: JP (occurrence: JP)
  Receive Date: 20241007
  Receipt Date: 20250630
  Transmission Date: 20250716
  Serious: Yes (Other)
  Sender: PFIZER
  Company Number: JP-ONO-2024JP020303

PATIENT
  Age: 69 Year
  Sex: Female
  Weight: 50.5 kg

DRUGS (4)
  1. BRAFTOVI [Suspect]
     Active Substance: ENCORAFENIB
     Indication: Thyroid cancer
     Route: 048
     Dates: start: 20240924
  2. BRAFTOVI [Suspect]
     Active Substance: ENCORAFENIB
     Dosage: 450 MG, DAILY
     Dates: start: 20240925, end: 20250204
  3. MEKTOVI [Suspect]
     Active Substance: BINIMETINIB
     Indication: Thyroid cancer
     Route: 048
     Dates: start: 20240924
  4. MEKTOVI [Suspect]
     Active Substance: BINIMETINIB
     Route: 048
     Dates: start: 20240925, end: 20250204

REACTIONS (2)
  - Central serous chorioretinopathy [Recovered/Resolved]
  - Hepatic function abnormal [Recovering/Resolving]

NARRATIVE: CASE EVENT DATE: 20240930
